FAERS Safety Report 10300982 (Version 3)
Quarter: 2014Q3

REPORT INFORMATION
  Report Type: Spontaneous
  Country: US (occurrence: US)
  Receive Date: 20140714
  Receipt Date: 20140905
  Transmission Date: 20150326
  Serious: Yes (Other)
  Sender: FDA-Public Use
  Company Number: US-PFIZER INC-2014195723

PATIENT
  Age: 39 Year
  Sex: Female
  Weight: 77.1 kg

DRUGS (1)
  1. LYRICA [Suspect]
     Active Substance: PREGABALIN
     Indication: DIABETIC NEUROPATHY
     Dosage: 75 MG, 2X/DAY

REACTIONS (2)
  - Blindness [Recovered/Resolved]
  - Impaired work ability [Unknown]

NARRATIVE: CASE EVENT DATE: 200501
